FAERS Safety Report 14432195 (Version 1)
Quarter: 2018Q1

REPORT INFORMATION
  Report Type: Spontaneous
  Country: US (occurrence: US)
  Receive Date: 20180124
  Receipt Date: 20180124
  Transmission Date: 20180509
  Serious: No
  Sender: FDA-Public Use
  Company Number: US-SHIRE-US201732508

PATIENT
  Sex: Male

DRUGS (1)
  1. NATPARA (PARATHYROID HORMONE) [Suspect]
     Active Substance: PARATHYROID HORMONE
     Indication: HYPOPARATHYROIDISM
     Route: 065

REACTIONS (8)
  - Hyperhidrosis [Unknown]
  - Depression [Unknown]
  - Muscle spasms [Unknown]
  - Abdominal pain [Unknown]
  - Paraesthesia [Unknown]
  - Underdose [Unknown]
  - Memory impairment [Unknown]
  - Hypoaesthesia [Unknown]
